FAERS Safety Report 21926073 (Version 2)
Quarter: 2023Q1

REPORT INFORMATION
  Report Type: Spontaneous
  Country: GB (occurrence: GB)
  Receive Date: 20230130
  Receipt Date: 20230210
  Transmission Date: 20230417
  Serious: Yes (Hospitalization)
  Sender: FDA-Public Use
  Company Number: None

PATIENT

DRUGS (12)
  1. ESOMEPRAZOLE [Suspect]
     Active Substance: ESOMEPRAZOLE
     Indication: Product used for unknown indication
     Dosage: 20 MILLIGRAM, QD
     Route: 065
  2. CO-AMILOFRUSE [Concomitant]
     Active Substance: AMILORIDE\FUROSEMIDE
     Indication: Product used for unknown indication
     Dosage: TWO TO BE TAKEN EACH DAY 56 TABLETS, 5MG/40MG; HELD AKI-NOW SWITCHED TO FUROSEMIDE
     Route: 065
  3. FLUOROMETHOLONE [Concomitant]
     Active Substance: FLUOROMETHOLONE
     Indication: Product used for unknown indication
     Dosage: OD LEFT EYE AS DIRECTED 5 ML
     Route: 061
  4. GABAPENTIN [Concomitant]
     Active Substance: GABAPENTIN
     Indication: Product used for unknown indication
     Dosage: 300 MG, TID (12 X 28 CAPSULE(B))
     Route: 065
  5. HYDROXOCOBALAMIN [Concomitant]
     Active Substance: HYDROXOCOBALAMIN
     Indication: Product used for unknown indication
     Dosage: 1MG/1ML; 1 3M 1 AMPOULE - DUE 04- MAY
     Route: 065
  6. BUTYLSCOPOLAMINE BROMIDE [Concomitant]
     Active Substance: BUTYLSCOPOLAMINE BROMIDE
     Indication: Product used for unknown indication
     Dosage: 10MG TABLETS TWO TO BE TAKEN FOUR TIMES A DAY
     Route: 065
  7. MEBEVERINE [Concomitant]
     Active Substance: MEBEVERINE
     Indication: Product used for unknown indication
     Dosage: ONE TO BE TAKEN THREE TIMES A DAY 84 TABLET
     Route: 065
  8. FLUOXETINE [Concomitant]
     Active Substance: FLUOXETINE HYDROCHLORIDE
     Indication: Product used for unknown indication
     Dosage: 20 MG, TID (84 CAPSULE (B))
     Route: 065
  9. FUROSEMIDE [Concomitant]
     Active Substance: FUROSEMIDE
     Indication: Product used for unknown indication
     Route: 065
  10. CEPHALEXIN [Concomitant]
     Active Substance: CEPHALEXIN
     Indication: Product used for unknown indication
     Dosage: ONE TO BE TAKEN THREE TIMES A DAY 21 CAPSULE
     Route: 065
     Dates: start: 20220225
  11. VITAMIN B COMPLEX [CALCIUM PANTOTHENATE;CYANOCOBALAMIN;NICOTINAMIDE;PY [Concomitant]
     Indication: Product used for unknown indication
     Dosage: UNK, 1/DAY
     Route: 065
  12. CONOTRANE [BENZALKONIUM CHLORIDE;DIMETICONE] [Concomitant]
     Indication: Product used for unknown indication
     Dosage: 500 MILLIGRAM, QD (APPLY TO AFFECTED AREA REGULARLY 500 GRAM)
     Route: 061

REACTIONS (1)
  - Hypomagnesaemia [Unknown]
